FAERS Safety Report 19660379 (Version 1)
Quarter: 2021Q3

REPORT INFORMATION
  Report Type: Spontaneous
  Country: ES (occurrence: ES)
  Receive Date: 20210805
  Receipt Date: 20210805
  Transmission Date: 20211014
  Serious: Yes (Hospitalization, Other)
  Sender: FDA-Public Use
  Company Number: ES-PFIZER INC-202100961598

PATIENT
  Age: 89 Year
  Sex: Female

DRUGS (1)
  1. METHOTREXATE SODIUM. [Suspect]
     Active Substance: METHOTREXATE SODIUM
     Indication: POLYARTHRITIS
     Dosage: 12.5 MG, WEEKLY

REACTIONS (2)
  - Epstein Barr virus positive mucocutaneous ulcer [Recovering/Resolving]
  - Uterine disorder [Recovering/Resolving]
